FAERS Safety Report 7805215-8 (Version None)
Quarter: 2011Q4

REPORT INFORMATION
  Report Type: 
  Country: None (occurrence: None)
  Receive Date: 20111010
  Receipt Date: 20110920
  Transmission Date: 20120403
  Serious: No
  Sender: FDA-Public Use
  Company Number: US-ROXANE LABORATORIES, INC.-2011-RO-01327RO

PATIENT
  Age: 69 Year
  Sex: Female

DRUGS (6)
  1. PRADAXA [Concomitant]
  2. LITHIUM CARBONATE [Suspect]
     Indication: BIPOLAR I DISORDER
     Route: 048
     Dates: start: 20110901, end: 20110901
  3. LAMICTAL [Concomitant]
     Indication: BIPOLAR I DISORDER
  4. LIPITOR [Concomitant]
     Indication: BLOOD CHOLESTEROL INCREASED
  5. CARDIZEM [Concomitant]
     Indication: HYPERTENSION
  6. LITHIUM CARBONATE [Suspect]
     Dosage: 450 MG
     Route: 048
     Dates: start: 20110919, end: 20110919

REACTIONS (2)
  - DRUG INEFFECTIVE [None]
  - MALAISE [None]
